FAERS Safety Report 8767119 (Version 2)
Quarter: 2013Q3

REPORT INFORMATION
  Report Type: Spontaneous
  Country: FR (occurrence: FR)
  Receive Date: 20120829
  Receipt Date: 20130925
  Transmission Date: 20140515
  Serious: Yes (Hospitalization)
  Sender: FDA-Public Use
  Company Number: FR-ELI_LILLY_AND_COMPANY-FR201208007911

PATIENT
  Age: 59 Year
  Sex: Male

DRUGS (3)
  1. ZYPADHERA [Suspect]
     Dosage: UNK, UNK
     Route: 030
  2. ZYPADHERA [Suspect]
     Dosage: 300MG, 15 DAYS
     Route: 030
     Dates: start: 20120821
  3. ZYPREXA [Suspect]
     Dosage: UNK, UNK
     Dates: end: 20120820

REACTIONS (7)
  - Disturbance in attention [Recovered/Resolved]
  - Somnolence [Recovered/Resolved]
  - Dysarthria [Recovered/Resolved]
  - Disorientation [Recovered/Resolved]
  - Dysuria [Unknown]
  - Psychotic disorder [Unknown]
  - Gait disturbance [Recovered/Resolved]
